FAERS Safety Report 18571851 (Version 2)
Quarter: 2020Q4

REPORT INFORMATION
  Report Type: Report from Study
  Country: US (occurrence: US)
  Receive Date: 20201202
  Receipt Date: 20201230
  Transmission Date: 20210114
  Serious: Yes (Other)
  Sender: FDA-Public Use
  Company Number: US-JNJFOC-20201120105

PATIENT
  Age: 70 Year
  Sex: Female

DRUGS (5)
  1. UPTRAVI [Suspect]
     Active Substance: SELEXIPAG
     Route: 048
  2. OPSUMIT [Concomitant]
     Active Substance: MACITENTAN
     Indication: PULMONARY ARTERIAL HYPERTENSION
  3. UPTRAVI [Suspect]
     Active Substance: SELEXIPAG
     Indication: PULMONARY ARTERIAL HYPERTENSION
     Route: 048
     Dates: start: 2020
  4. UPTRAVI [Suspect]
     Active Substance: SELEXIPAG
     Dosage: 400 MCG AM AND 200 MCG PM
     Route: 048
     Dates: start: 20201021
  5. NARCO [FENTANYL CITRATE] [Suspect]
     Active Substance: FENTANYL CITRATE
     Indication: PAIN
     Route: 065

REACTIONS (16)
  - Injection site erythema [Recovering/Resolving]
  - Myalgia [Recovering/Resolving]
  - Eye contusion [Unknown]
  - Stress [Unknown]
  - Constipation [Unknown]
  - Fall [Unknown]
  - Upper limb fracture [Unknown]
  - Abdominal pain upper [Unknown]
  - Diarrhoea [Unknown]
  - Insomnia [Unknown]
  - Multiple allergies [Unknown]
  - Arthralgia [Recovering/Resolving]
  - Dyspepsia [Unknown]
  - Glaucoma [Not Recovered/Not Resolved]
  - Cataract [Unknown]
  - Weight increased [Unknown]

NARRATIVE: CASE EVENT DATE: 202011
